FAERS Safety Report 10091746 (Version 1)
Quarter: 2014Q2

REPORT INFORMATION
  Report Type: Spontaneous
  Country: US (occurrence: US)
  Receive Date: 20140421
  Receipt Date: 20140421
  Transmission Date: 20141212
  Serious: Yes (Death)
  Sender: FDA-Public Use
  Company Number: US-PURDUE-USA-2004-0016464

PATIENT
  Sex: Female

DRUGS (3)
  1. OXYFAST CONCENTRATE 20 MG/ML [Suspect]
     Indication: CANCER PAIN
     Dosage: UNK UNK, UNK
     Route: 065
  2. DARVOCET-N [Suspect]
     Indication: PRODUCT USED FOR UNKNOWN INDICATION
  3. UNKNOWN [Concomitant]

REACTIONS (1)
  - Overdose [Fatal]
